FAERS Safety Report 10223810 (Version 1)
Quarter: 2014Q2

REPORT INFORMATION
  Report Type: Spontaneous
  Country: SE (occurrence: SE)
  Receive Date: 20140609
  Receipt Date: 20140609
  Transmission Date: 20141212
  Serious: Yes (Other)
  Sender: FDA-Public Use
  Company Number: SE-JNJFOC-20140517901

PATIENT
  Sex: 0

DRUGS (1)
  1. FENTANYL [Suspect]
     Indication: PRODUCT USED FOR UNKNOWN INDICATION
     Route: 062

REACTIONS (12)
  - Intentional overdose [Unknown]
  - Drug abuse [Unknown]
  - Intentional product misuse [Unknown]
  - Drug dependence [Unknown]
  - Suicide attempt [Unknown]
  - Accidental overdose [Unknown]
  - Incorrect route of drug administration [Unknown]
  - Toxicity to various agents [Unknown]
  - Wrong technique in drug usage process [Unknown]
  - Intentional product misuse [Unknown]
  - Intentional product misuse [Unknown]
  - Wrong technique in drug usage process [Unknown]
